FAERS Safety Report 8872706 (Version 1)
Quarter: 2012Q4

REPORT INFORMATION
  Report Type: 
  Country: HR (occurrence: HR)
  Receive Date: 20121030
  Receipt Date: 20121030
  Transmission Date: 20130627
  Serious: Yes (Life-Threatening, Hospitalization)
  Sender: FDA-Public Use
  Company Number: HR-ROCHE-1150225

PATIENT
  Age: 75 Year
  Sex: Female

DRUGS (6)
  1. XELODA [Suspect]
     Indication: COLON CANCER
     Route: 065
     Dates: start: 20120712, end: 20120717
  2. CONCOR [Concomitant]
     Route: 065
  3. LERCANIDIPINE HYDROCHLORIDE [Concomitant]
     Route: 065
  4. HYDROCHLOROTHIAZIDE/VALSARTAN [Concomitant]
     Dosage: 12.5 mg/ 160 mg
     Route: 065
  5. MEGOSTAT [Concomitant]
     Route: 065
  6. CERSON [Concomitant]
     Route: 065

REACTIONS (3)
  - Pain [Recovered/Resolved with Sequelae]
  - Dyspnoea [Recovered/Resolved with Sequelae]
  - Orthopnoea [Recovered/Resolved with Sequelae]
